FAERS Safety Report 6870681-1 (Version None)
Quarter: 2010Q3

REPORT INFORMATION
  Report Type: 
  Country: None (occurrence: None)
  Receive Date: 20100723
  Receipt Date: 20090910
  Transmission Date: 20110219
  Serious: No
  Sender: FDA-Public Use
  Company Number: A0806750A

PATIENT
  Sex: Female

DRUGS (1)
  1. DYAZIDE [Suspect]

REACTIONS (2)
  - DRUG INEFFECTIVE [None]
  - MALAISE [None]
